FAERS Safety Report 12707978 (Version 1)
Quarter: 2016Q3

REPORT INFORMATION
  Report Type: Spontaneous
  Country: US (occurrence: US)
  Receive Date: 20160901
  Receipt Date: 20160901
  Transmission Date: 20161109
  Serious: Yes (Life-Threatening, Hospitalization, Other)
  Sender: FDA-Public Use
  Company Number: US-INDIVIOR LIMITED-INDV-094401-2016

PATIENT
  Age: 47 Year
  Sex: Female

DRUGS (3)
  1. SUBOXONE [Suspect]
     Active Substance: BUPRENORPHINE HYDROCHLORIDE\NALOXONE HYDROCHLORIDE
     Dosage: 16 MG ON DAY 2
     Route: 060
     Dates: start: 20160728, end: 20160728
  2. SUBOXONE [Suspect]
     Active Substance: BUPRENORPHINE HYDROCHLORIDE\NALOXONE HYDROCHLORIDE
     Indication: DRUG DEPENDENCE
     Dosage: 8MG ON DAY 1
     Route: 060
     Dates: start: 20160727, end: 20160727
  3. SUBOXONE [Suspect]
     Active Substance: BUPRENORPHINE HYDROCHLORIDE\NALOXONE HYDROCHLORIDE
     Dosage: UNK DOSE ON DAY 3
     Route: 060
     Dates: start: 20160729, end: 20160729

REACTIONS (6)
  - White blood cell count increased [Unknown]
  - Confusional state [Unknown]
  - Myoclonus [Unknown]
  - Respiratory failure [Unknown]
  - Lethargy [Unknown]
  - Brain oedema [Unknown]

NARRATIVE: CASE EVENT DATE: 20160729
